FAERS Safety Report 9897380 (Version 7)
Quarter: 2016Q1

REPORT INFORMATION
  Report Type: Report from Study
  Country: US (occurrence: US)
  Receive Date: 20140214
  Receipt Date: 20160311
  Transmission Date: 20160526
  Serious: Yes (Hospitalization, Other)
  Sender: FDA-Public Use
  Company Number: US-SANOFI-AVENTIS-2013SA057138

PATIENT
  Age: 58 Year
  Sex: Female

DRUGS (2)
  1. AUBAGIO [Suspect]
     Active Substance: TERIFLUNOMIDE
     Indication: MULTIPLE SCLEROSIS
     Route: 048
     Dates: start: 20130509, end: 20150501
  2. CYMBALTA [Concomitant]
     Active Substance: DULOXETINE HYDROCHLORIDE

REACTIONS (23)
  - Surgery [Recovered/Resolved]
  - Post procedural drainage [Unknown]
  - Erythema [Unknown]
  - Eye discharge [Unknown]
  - Throat irritation [Unknown]
  - Weight decreased [Unknown]
  - Abdominal symptom [Unknown]
  - Headache [Unknown]
  - Drug dose omission [Unknown]
  - Nuchal rigidity [Unknown]
  - Furuncle [Unknown]
  - Vomiting [Unknown]
  - Neck surgery [Unknown]
  - Influenza [Unknown]
  - Facial pain [Unknown]
  - Lower limb fracture [Recovering/Resolving]
  - Sleep disorder [Unknown]
  - Conjunctivitis [Unknown]
  - Trigeminal neuralgia [Unknown]
  - Staphylococcal infection [Unknown]
  - Abdominal pain upper [Recovering/Resolving]
  - Weight increased [Not Recovered/Not Resolved]
  - Fatigue [Unknown]

NARRATIVE: CASE EVENT DATE: 2013
